FAERS Safety Report 4371084-4 (Version None)
Quarter: 2004Q2

REPORT INFORMATION
  Report Type: 
  Country: None (occurrence: None)
  Receive Date: 20040604
  Receipt Date: 20030407
  Transmission Date: 20050107
  Serious: Yes (Hospitalization, Other)
  Sender: FDA-Public Use
  Company Number: US-MERCK-0304USA00833

PATIENT
  Age: 41 Year
  Sex: Female
  Weight: 52 kg

DRUGS (3)
  1. CARDIZEM [Concomitant]
     Indication: CHEST DISCOMFORT
     Route: 065
     Dates: start: 19991221
  2. ISMO [Concomitant]
     Indication: CHEST DISCOMFORT
     Route: 065
     Dates: start: 19991221
  3. VIOXX [Suspect]
     Indication: BACK DISORDER
     Route: 048
     Dates: start: 20001130, end: 20001201

REACTIONS (16)
  - ANGIONEUROTIC OEDEMA [None]
  - ARTERIOSPASM CORONARY [None]
  - BACK PAIN [None]
  - CELLULITIS [None]
  - CHEST PAIN [None]
  - DEPRESSION [None]
  - EMOTIONAL DISTRESS [None]
  - HYPERHIDROSIS [None]
  - INJURY [None]
  - JOINT INJURY [None]
  - OEDEMA PERIPHERAL [None]
  - PALPITATIONS [None]
  - PNEUMONIA [None]
  - SKIN DISCOLOURATION [None]
  - SYNOVITIS [None]
  - WHITE BLOOD CELL COUNT INCREASED [None]
